FAERS Safety Report 4768817-1 (Version None)
Quarter: 2005Q3

REPORT INFORMATION
  Report Type: 
  Country: None (occurrence: None)
  Receive Date: 20050914
  Receipt Date: 20050301
  Transmission Date: 20060218
  Serious: Yes (Hospitalization, Other)
  Sender: FDA-Public Use
  Company Number: AU-MERCK-0503AUS00010

PATIENT
  Age: 71 Year
  Sex: Male
  Weight: 92 kg

DRUGS (7)
  1. METOPROLOL TARTRATE [Concomitant]
     Indication: MYOCARDIAL ISCHAEMIA
     Route: 065
     Dates: start: 20010101
  2. NITROGLYCERIN [Concomitant]
     Indication: MYOCARDIAL ISCHAEMIA
     Route: 065
     Dates: start: 20010101
  3. SPIRONOLACTONE [Concomitant]
     Indication: HYPERTENSION
     Route: 065
     Dates: start: 20010801
  4. TELMISARTAN [Concomitant]
     Indication: HYPERTENSION
     Route: 048
     Dates: start: 20020801
  5. ASPIRIN [Concomitant]
     Indication: MYOCARDIAL ISCHAEMIA
     Route: 048
     Dates: start: 20010101
  6. PHENYTOIN [Concomitant]
     Indication: EPILEPSY
     Route: 065
  7. EZETIMIBE [Suspect]
     Indication: DYSLIPIDAEMIA
     Route: 048
     Dates: start: 20040810, end: 20050214

REACTIONS (4)
  - ABDOMINAL PAIN UPPER [None]
  - LIVER FUNCTION TEST ABNORMAL [None]
  - PANCREATITIS [None]
  - PYREXIA [None]
